FAERS Safety Report 25832587 (Version 1)
Quarter: 2025Q3

REPORT INFORMATION
  Report Type: Spontaneous
  Country: US (occurrence: None)
  Receive Date: 20250920
  Receipt Date: 20250920
  Transmission Date: 20251021
  Serious: Yes (Hospitalization)
  Sender: FDA-CTU
  Company Number: None

PATIENT
  Age: 53 Year
  Sex: Female
  Weight: 98 kg

DRUGS (3)
  1. CARBOPLATIN [Suspect]
     Active Substance: CARBOPLATIN
     Dates: end: 20230613
  2. FEMARA [Suspect]
     Active Substance: LETROZOLE
     Dates: end: 20250912
  3. TAXOL [Suspect]
     Active Substance: PACLITAXEL
     Dates: start: 20230613

REACTIONS (9)
  - Sepsis [None]
  - Obesity [None]
  - Essential hypertension [None]
  - Kidney infection [None]
  - Chronic kidney disease [None]
  - Anaemia [None]
  - Sinus tachycardia [None]
  - Enterococcus test positive [None]
  - Escherichia infection [None]

NARRATIVE: CASE EVENT DATE: 20250912
